FAERS Safety Report 7807462-8 (Version None)
Quarter: 2011Q4

REPORT INFORMATION
  Report Type: 
  Country: None (occurrence: None)
  Receive Date: 20111011
  Receipt Date: 20110930
  Transmission Date: 20120403
  Serious: Yes (Other)
  Sender: FDA-Public Use
  Company Number: PHHO2011CA16883

PATIENT
  Sex: Female
  Weight: 72.3 kg

DRUGS (1)
  1. FTY [Suspect]
     Indication: MULTIPLE SCLEROSIS
     Dosage: UNK

REACTIONS (1)
  - BOWEN'S DISEASE [None]
